FAERS Safety Report 4452595-X (Version None)
Quarter: 2004Q3

REPORT INFORMATION
  Report Type: 
  Country: None (occurrence: None)
  Receive Date: 20040913
  Receipt Date: 20040727
  Transmission Date: 20050211
  Serious: No
  Sender: FDA-Public Use
  Company Number: 2004-BP-06252BP(0)

PATIENT
  Age: 81 Year
  Sex: Female

DRUGS (7)
  1. SPIRIVA [Suspect]
     Indication: CHRONIC OBSTRUCTIVE AIRWAYS DISEASE
     Dosage: 18 MCG (18 MCG), IH
     Dates: start: 20040601
  2. PULMICORT [Concomitant]
  3. SINGULAIR [Concomitant]
  4. ZYRTEC [Concomitant]
  5. SEREVENT [Concomitant]
  6. ALBUTEROL [Concomitant]
  7. LEVOTHYROXINE SODIUM [Concomitant]

REACTIONS (3)
  - HOARSENESS [None]
  - INCREASED UPPER AIRWAY SECRETION [None]
  - POSTNASAL DRIP [None]
